FAERS Safety Report 4918549-1 (Version None)
Quarter: 2006Q1

REPORT INFORMATION
  Report Type: 
  Country: None (occurrence: None)
  Receive Date: 20060221
  Receipt Date: 20060221
  Transmission Date: 20060701
  Serious: Yes (Death)
  Sender: FDA-Public Use
  Company Number: None

PATIENT
  Age: 66 Year
  Sex: Female

DRUGS (2)
  1. ALIMTA [Suspect]
     Indication: LEIOMYOSARCOMA METASTATIC
     Dosage: 300 MG/M2 Q 2 WEEKS
     Dates: start: 20051115, end: 20060112
  2. TAXOTERE [Suspect]
     Dosage: 25 MG/M2 Q 2 WEEKS
     Dates: start: 20051115, end: 20060112

REACTIONS (23)
  - BLOOD CREATININE INCREASED [None]
  - BRONCHOPNEUMONIA [None]
  - DEHYDRATION [None]
  - GASTROINTESTINAL DISORDER [None]
  - GENERALISED OEDEMA [None]
  - HEPATIC CONGESTION [None]
  - HYPOXIA [None]
  - LARYNGEAL ULCERATION [None]
  - LUNG INFECTION [None]
  - LUNG INFILTRATION [None]
  - METASTASES TO ADRENALS [None]
  - METASTASES TO KIDNEY [None]
  - METASTASES TO LARGE INTESTINE [None]
  - METASTASES TO LIVER [None]
  - METASTASES TO LUNG [None]
  - METASTASES TO PANCREAS [None]
  - METASTASES TO PERITONEUM [None]
  - METASTASES TO SMALL INTESTINE [None]
  - METASTASES TO UTERUS [None]
  - METASTASIS [None]
  - NEPHROPATHY [None]
  - PLEURAL EFFUSION [None]
  - SPLEEN CONGESTION [None]
